FAERS Safety Report 23930672 (Version 1)
Quarter: 2024Q2

REPORT INFORMATION
  Report Type: Spontaneous
  Country: US (occurrence: US)
  Receive Date: 20240603
  Receipt Date: 20240603
  Transmission Date: 20240716
  Serious: Yes (Hospitalization, Other)
  Sender: FDA-Public Use
  Company Number: US-PCCINC-2024-PPL-000413

PATIENT

DRUGS (1)
  1. GABLOFEN [Suspect]
     Active Substance: BACLOFEN
     Indication: Product used for unknown indication
     Dosage: 96.2 MICROGRAM/DAY
     Route: 037

REACTIONS (2)
  - Wound infection [Unknown]
  - Implant site infection [Unknown]

NARRATIVE: CASE EVENT DATE: 20240423
